FAERS Safety Report 18451048 (Version 1)
Quarter: 2020Q4

REPORT INFORMATION
  Report Type: Spontaneous
  Country: US (occurrence: US)
  Receive Date: 20201101
  Receipt Date: 20201101
  Transmission Date: 20210114
  Serious: Yes (Other)
  Sender: FDA-Public Use
  Company Number: US-NAPPMUNDI-USA-2020-0154136

PATIENT
  Sex: Male

DRUGS (2)
  1. OXYCONTIN [Suspect]
     Active Substance: OXYCODONE HYDROCHLORIDE
     Indication: ANALGESIC THERAPY
     Dosage: 80 MG, TID
     Route: 048
     Dates: start: 2005
  2. OXYCONTIN [Suspect]
     Active Substance: OXYCODONE HYDROCHLORIDE
     Dosage: 15 MG, BID
     Route: 048

REACTIONS (11)
  - Depression [Unknown]
  - Wheelchair user [Unknown]
  - Injury [Unknown]
  - Pain [Unknown]
  - Confusional state [Unknown]
  - Off label use [Unknown]
  - Unevaluable event [Unknown]
  - Drug dependence [Unknown]
  - Gait disturbance [Unknown]
  - Hypersomnia [Unknown]
  - Walking aid user [Unknown]
